FAERS Safety Report 8937898 (Version 1)
Quarter: 2012Q4

REPORT INFORMATION
  Report Type: 
  Country: US (occurrence: US)
  Receive Date: 20121130
  Receipt Date: 20121130
  Transmission Date: 20130627
  Serious: No
  Sender: FDA-Public Use
  Company Number: US-009507513-1211USA011549

PATIENT
  Sex: Male

DRUGS (2)
  1. SAPHRIS [Suspect]
  2. CYMBALTA [Suspect]

REACTIONS (1)
  - Penis disorder [Unknown]
